FAERS Safety Report 11559899 (Version 4)
Quarter: 2015Q4

REPORT INFORMATION
  Report Type: Spontaneous
  Country: US (occurrence: US)
  Receive Date: 20150928
  Receipt Date: 20151014
  Transmission Date: 20160304
  Serious: Yes (Hospitalization)
  Sender: FDA-Public Use
  Company Number: US-UNITED THERAPEUTICS CORP.-UTC-047507

PATIENT
  Age: 20 Year
  Sex: Male

DRUGS (6)
  1. TADALAFIL [Concomitant]
     Active Substance: TADALAFIL
  2. TYVASO [Suspect]
     Active Substance: TREPROSTINIL
     Indication: PULMONARY ARTERIAL HYPERTENSION
     Dates: start: 201307, end: 20130902
  3. TYVASO [Suspect]
     Active Substance: TREPROSTINIL
     Dates: start: 20130930
  4. TADALAFIL [Concomitant]
     Active Substance: TADALAFIL
     Indication: PULMONARY HYPERTENSION
  5. AMBRISENTAN [Concomitant]
     Active Substance: AMBRISENTAN
     Indication: PULMONARY HYPERTENSION
  6. AMBRISENTAN [Concomitant]
     Active Substance: AMBRISENTAN

REACTIONS (5)
  - Incorrect route of drug administration [Unknown]
  - Vocal cord paralysis [Unknown]
  - Dyspnoea [Unknown]
  - Respiratory failure [Unknown]
  - Stridor [Unknown]

NARRATIVE: CASE EVENT DATE: 20130831
